FAERS Safety Report 9779989 (Version 1)
Quarter: 2013Q4

REPORT INFORMATION
  Report Type: Spontaneous
  Country: JP (occurrence: JP)
  Receive Date: 20131223
  Receipt Date: 20131223
  Transmission Date: 20140711
  Serious: Yes (Hospitalization)
  Sender: FDA-Public Use
  Company Number: JP-B.I. PHARMACEUTICALS,INC./RIDGEFIELD-2013-BI-43224NB

PATIENT
  Age: 83 Year
  Sex: 0

DRUGS (2)
  1. SPIRIVA [Suspect]
     Indication: EMPHYSEMA
     Route: 055
  2. UNKNOWNNDRG [Concomitant]
     Route: 065

REACTIONS (5)
  - Road traffic accident [Unknown]
  - Rib fracture [Unknown]
  - Clavicle fracture [Unknown]
  - Sputum discoloured [Unknown]
  - Productive cough [Unknown]
